FAERS Safety Report 7721120-X (Version None)
Quarter: 2011Q3

REPORT INFORMATION
  Report Type: 
  Country: None (occurrence: None)
  Receive Date: 20110817
  Receipt Date: 20110608
  Transmission Date: 20111222
  Serious: Yes (Other)
  Sender: FDA-Public Use
  Company Number: 201110665

PATIENT
  Age: 25 Year
  Sex: Male

DRUGS (1)
  1. LIORESAL [Suspect]
     Indication: MUSCLE SPASTICITY
     Dosage: 402.1 MCG, DAILY, INTRATHECAL
     Route: 037

REACTIONS (4)
  - HYPERTONIA [None]
  - PRURITUS [None]
  - CLONUS [None]
  - DRUG WITHDRAWAL SYNDROME [None]
